FAERS Safety Report 16449432 (Version 1)
Quarter: 2019Q2

REPORT INFORMATION
  Report Type: Report from Study
  Country: None (occurrence: CO)
  Receive Date: 20190619
  Receipt Date: 20190619
  Transmission Date: 20190711
  Serious: Yes (Death, Other)
  Sender: FDA-Public Use
  Company Number: CO-ABBVIE-19K-036-2824952-00

PATIENT
  Age: 69 Year
  Sex: Female

DRUGS (1)
  1. HUMIRA [Suspect]
     Active Substance: ADALIMUMAB
     Indication: RHEUMATOID ARTHRITIS
     Route: 058
     Dates: start: 20160303, end: 20190501

REACTIONS (4)
  - Urinary tract infection [Not Recovered/Not Resolved]
  - Cardio-respiratory arrest [Fatal]
  - Urinary tract obstruction [Not Recovered/Not Resolved]
  - Bladder mass [Not Recovered/Not Resolved]

NARRATIVE: CASE EVENT DATE: 20190608
